FAERS Safety Report 7585535-5 (Version None)
Quarter: 2011Q2

REPORT INFORMATION
  Report Type: 
  Country: None (occurrence: None)
  Receive Date: 20110624
  Receipt Date: 20110614
  Transmission Date: 20111010
  Serious: Yes (Hospitalization)
  Sender: FDA-Public Use
  Company Number: 1000021683

PATIENT
  Age: 23 Year
  Sex: Female

DRUGS (7)
  1. MIRTAZAPINE [Suspect]
     Indication: NEUROSIS
     Dosage: 15 MG (15 MG,1 IN 1 D), ORAL
     Route: 048
  2. PANODIL FORTE (PARACETAMOL) (PARACETAMOL) [Concomitant]
  3. ATARAX (HYDROXYZINE) (TABLETS) (HYDROXYZINE) [Concomitant]
  4. ESCITALOPRAM [Suspect]
     Indication: NEUROSIS
     Dosage: 5 MG (5 MG,1 IN 1 D), ORAL
     Route: 048
  5. PANOCOD (ACETAMINOPHEN, CODEINE PHOSPHATE) (TABLETS) (ACETAMINOPHEN, C [Concomitant]
  6. DIKLOFENAK (DICLOFENAC SODIUM) (TABLETS) (DICLOFENAC SODIUM) [Concomitant]
  7. THERALEN ORAL DROPS (ALIMEMAZINE TARTRATE) [Concomitant]

REACTIONS (7)
  - GRAND MAL CONVULSION [None]
  - POST-TRAUMATIC PAIN [None]
  - CONDITION AGGRAVATED [None]
  - TONGUE BITING [None]
  - ANXIETY [None]
  - CONVULSION [None]
  - ROAD TRAFFIC ACCIDENT [None]
